FAERS Safety Report 9529961 (Version 1)
Quarter: 2013Q3

REPORT INFORMATION
  Report Type: Spontaneous
  Country: US (occurrence: US)
  Receive Date: 20130917
  Receipt Date: 20130917
  Transmission Date: 20140515
  Serious: No
  Sender: FDA-Public Use
  Company Number: US-B.I. PHARMACEUTICALS,INC./RIDGEFIELD-2013-BI-27880BP

PATIENT
  Sex: Male

DRUGS (7)
  1. PRADAXA [Suspect]
     Indication: ATRIAL FIBRILLATION
     Dosage: 300 MG
     Route: 048
     Dates: start: 201012
  2. DILTIAZEM [Concomitant]
     Dosage: 240 MG
  3. DIGOXIN [Concomitant]
     Dosage: 250 MCG
  4. LOVASTATIN [Concomitant]
     Dosage: 40 MG
  5. TAMSULOSIN [Concomitant]
     Dosage: 0.4 MG
  6. XALATAN LATANOPROSE [Concomitant]
  7. FLUTICASONE PROPIONATE [Concomitant]
     Dosage: FORMULATION: NASAL SPRAY

REACTIONS (6)
  - Aspartate aminotransferase increased [Not Recovered/Not Resolved]
  - Alanine aminotransferase increased [Not Recovered/Not Resolved]
  - Blood creatinine increased [Not Recovered/Not Resolved]
  - Glomerular filtration rate decreased [Not Recovered/Not Resolved]
  - Blood triglycerides increased [Not Recovered/Not Resolved]
  - Blood calcium increased [Not Recovered/Not Resolved]
